FAERS Safety Report 8543112-3 (Version None)
Quarter: 2012Q3

REPORT INFORMATION
  Report Type: 
  Country: None (occurrence: None)
  Receive Date: 20120727
  Receipt Date: 20111202
  Transmission Date: 20120928
  Serious: No
  Sender: FDA-Public Use
  Company Number: US-MYLANLABS-2011S1025012

PATIENT
  Age: 38 Year
  Sex: Female
  Weight: 53.07 kg

DRUGS (4)
  1. VITAMIN TAB [Concomitant]
  2. LEVOTHYROXINE SODIUM [Suspect]
     Route: 048
     Dates: start: 20110901
  3. LEVOTHYROXINE SODIUM [Suspect]
     Route: 048
     Dates: start: 20110801, end: 20110901
  4. LEVOTHYROXINE SODIUM [Suspect]
     Indication: THYROIDECTOMY
     Route: 048
     Dates: start: 20110701, end: 20110801

REACTIONS (7)
  - ARTHRALGIA [None]
  - DRUG EFFECT INCREASED [None]
  - HEADACHE [None]
  - ALOPECIA [None]
  - MENORRHAGIA [None]
  - DRUG EFFECT DECREASED [None]
  - MUSCLE SPASMS [None]
